FAERS Safety Report 7542025-3 (Version None)
Quarter: 2011Q2

REPORT INFORMATION
  Report Type: 
  Country: None (occurrence: None)
  Receive Date: 20110613
  Receipt Date: 20110608
  Transmission Date: 20111010
  Serious: Yes (Death, Hospitalization)
  Sender: FDA-Public Use
  Company Number: US-PFIZER INC-2011124783

PATIENT
  Age: 59 Year
  Sex: Male

DRUGS (2)
  1. ROBITUSSIN COUGH LONG ACTING [Suspect]
     Dosage: UNK
  2. ACETAMINOPHEN [Suspect]
     Indication: PYREXIA
     Dosage: 1 IN 4 HOUR
     Dates: start: 19970101

REACTIONS (1)
  - PNEUMONIA [None]
